FAERS Safety Report 25259645 (Version 1)
Quarter: 2025Q2

REPORT INFORMATION
  Report Type: Spontaneous
  Country: BR (occurrence: BR)
  Receive Date: 20250501
  Receipt Date: 20250501
  Transmission Date: 20250716
  Serious: Yes (Hospitalization, Other)
  Sender: RANBAXY
  Company Number: BR-SUN PHARMACEUTICAL INDUSTRIES LTD-2025R1-502190

PATIENT
  Age: 2 Month
  Sex: Female

DRUGS (4)
  1. CAFFEINE [Suspect]
     Active Substance: CAFFEINE
     Indication: Respiratory tract infection
     Route: 065
  2. CAFFEINE [Suspect]
     Active Substance: CAFFEINE
     Indication: Apnoea
  3. CLARITHROMYCIN [Suspect]
     Active Substance: CLARITHROMYCIN
     Indication: Respiratory tract infection
     Dosage: 15 MILLIGRAM/KILOGRAM, DAILY
     Route: 065
  4. CLARITHROMYCIN [Suspect]
     Active Substance: CLARITHROMYCIN
     Indication: Apnoea

REACTIONS (1)
  - Hyperlactacidaemia [Recovered/Resolved]
